FAERS Safety Report 25844783 (Version 1)
Quarter: 2025Q3

REPORT INFORMATION
  Report Type: Spontaneous
  Country: CN (occurrence: CN)
  Receive Date: 20250925
  Receipt Date: 20250925
  Transmission Date: 20251021
  Serious: Yes (Disabling)
  Sender: ROCHE
  Company Number: CN-ROCHE-10000392518

PATIENT
  Age: 39 Year
  Sex: Female

DRUGS (4)
  1. BEVACIZUMAB [Suspect]
     Active Substance: BEVACIZUMAB
     Indication: Ovarian cancer
     Route: 042
     Dates: start: 20250904, end: 20250904
  2. SACITUZUMAB GOVITECAN [Suspect]
     Active Substance: SACITUZUMAB GOVITECAN
     Indication: Ovarian cancer
     Route: 042
     Dates: start: 20250904, end: 20250904
  3. Sodium Chloride Injection (0.9%) [Concomitant]
     Route: 042
     Dates: start: 20250904, end: 20250904
  4. Sodium Chloride Injection (0.9%) [Concomitant]
     Route: 042
     Dates: start: 20250904, end: 20250904

REACTIONS (2)
  - White blood cell count decreased [Recovering/Resolving]
  - Neutrophil count decreased [Recovering/Resolving]

NARRATIVE: CASE EVENT DATE: 20250909
